FAERS Safety Report 5076743-6 (Version None)
Quarter: 2006Q3

REPORT INFORMATION
  Report Type: 
  Country: None (occurrence: None)
  Receive Date: 20060810
  Receipt Date: 20060420
  Transmission Date: 20061208
  Serious: Yes (Other)
  Sender: FDA-Public Use
  Company Number: 2006UW07473

PATIENT
  Age: 5721 Day
  Sex: Male
  Weight: 80 kg

DRUGS (4)
  1. SEROQUEL [Suspect]
     Indication: SCHIZOPHRENIA
     Dosage: TITRATED TO 400MG
     Route: 048
     Dates: start: 20060113, end: 20060122
  2. SEROQUEL [Suspect]
     Route: 048
     Dates: start: 20060123, end: 20060309
  3. SEROQUEL [Suspect]
     Route: 048
     Dates: start: 20060310, end: 20060416
  4. IBUPROFEN [Concomitant]
     Indication: JOINT SPRAIN
     Route: 048
     Dates: start: 20050306, end: 20050306

REACTIONS (19)
  - ABDOMINAL PAIN UPPER [None]
  - AGITATION [None]
  - ANXIETY [None]
  - APNOEA [None]
  - ARRHYTHMIA [None]
  - ASTHENIA [None]
  - BACTERIAL INFECTION [None]
  - BLOOD PRESSURE INCREASED [None]
  - DYSKINESIA [None]
  - EYE DISORDER [None]
  - GAIT DISTURBANCE [None]
  - HEADACHE [None]
  - MUSCLE TWITCHING [None]
  - NAUSEA [None]
  - NERVOUSNESS [None]
  - PALLOR [None]
  - PANIC ATTACK [None]
  - PARAESTHESIA [None]
  - PAROXYSMAL ARRHYTHMIA [None]
